FAERS Safety Report 5765479-1 (Version None)
Quarter: 2008Q2

REPORT INFORMATION
  Report Type: 
  Country: None (occurrence: None)
  Receive Date: 20080611
  Receipt Date: 20080606
  Transmission Date: 20081010
  Serious: Yes (Hospitalization, Other)
  Sender: FDA-Public Use
  Company Number: B0519632A

PATIENT
  Age: 57 Year
  Sex: Female

DRUGS (8)
  1. ZOVIRAX [Suspect]
     Indication: HERPES ZOSTER
     Dosage: 250MG THREE TIMES PER DAY
     Route: 042
     Dates: start: 20080424, end: 20080428
  2. AZULFIDINE EN-TABS [Concomitant]
     Indication: RHEUMATOID ARTHRITIS
     Dosage: 500MG TWICE PER DAY
     Route: 048
  3. MERCAZOLE [Concomitant]
     Indication: HYPERTHYROIDISM
     Dosage: 5MG PER DAY
     Route: 048
     Dates: end: 20080427
  4. NORVASC [Concomitant]
     Indication: HYPERTENSION
     Dosage: 5MG PER DAY
     Route: 048
     Dates: end: 20080427
  5. PREDONINE [Concomitant]
     Indication: RHEUMATOID ARTHRITIS
     Route: 048
  6. BLOPRESS [Concomitant]
     Indication: HYPERTENSION
     Dosage: 8MG PER DAY
     Route: 048
     Dates: start: 20071106, end: 20080427
  7. FOLIAMIN [Concomitant]
     Indication: FOLATE DEFICIENCY
     Dosage: 5MG PER DAY
     Route: 048
     Dates: end: 20080427
  8. AMOBAN [Concomitant]
     Indication: INSOMNIA
     Dosage: 1000MG PER DAY
     Route: 048

REACTIONS (4)
  - HYPERTHERMIA [None]
  - SEPSIS [None]
  - URINARY TRACT INFECTION [None]
  - WHITE BLOOD CELL COUNT DECREASED [None]
